FAERS Safety Report 9892463 (Version 3)
Quarter: 2014Q2

REPORT INFORMATION
  Report Type: Report from Study
  Country: US (occurrence: US)
  Receive Date: 20140212
  Receipt Date: 20140418
  Transmission Date: 20141212
  Serious: Yes (Other)
  Sender: FDA-Public Use
  Company Number: US-ABBVIE-12P-163-1015159-00

PATIENT
  Age: 28 Year
  Sex: Female

DRUGS (5)
  1. HUMIRA [Suspect]
     Indication: CROHN^S DISEASE
     Dosage: 20 WEEKS
     Dates: start: 20121101, end: 20121101
  2. HUMIRA [Suspect]
     Dosage: 22 WEEKS
     Dates: start: 20121115, end: 20121115
  3. HUMIRA [Suspect]
     Dosage: 24 WEEKS
     Dates: start: 20121129, end: 20121129
  4. HUMIRA [Suspect]
     Dosage: 26 WEEKS
     Dates: start: 20121213
  5. PRENATAL VITAMINS [Concomitant]
     Indication: PRODUCT USED FOR UNKNOWN INDICATION

REACTIONS (4)
  - Peritonitis [Unknown]
  - Intestinal perforation [Unknown]
  - Drug ineffective [Not Recovered/Not Resolved]
  - Sepsis [Unknown]
